FAERS Safety Report 25797241 (Version 1)
Quarter: 2025Q3

REPORT INFORMATION
  Report Type: Spontaneous
  Country: US (occurrence: US)
  Receive Date: 20250912
  Receipt Date: 20250912
  Transmission Date: 20251020
  Serious: Yes (Other)
  Sender: VERTEX
  Company Number: US-VERTEX PHARMACEUTICALS-2025-013747

PATIENT
  Age: 7 Year
  Sex: Male

DRUGS (2)
  1. ALYFTREK [Suspect]
     Active Substance: DEUTIVACAFTOR\TEZACAFTOR\VANZACAFTOR
     Indication: Cystic fibrosis
     Dosage: 03 TABLETS (4MG VANZACAFTOR/ 20MG TEZACAFTOR/ 50MG DEUTIVACAFTOR), QD
     Route: 048
  2. PULMOZYME [Suspect]
     Active Substance: DORNASE ALFA
     Indication: Cystic fibrosis
     Route: 065

REACTIONS (4)
  - Burns second degree [Unknown]
  - Nasopharyngitis [Not Recovered/Not Resolved]
  - Hepatic enzyme increased [Unknown]
  - Thermal burn [Unknown]

NARRATIVE: CASE EVENT DATE: 20250801
